FAERS Safety Report 4414838-8 (Version None)
Quarter: 2004Q3

REPORT INFORMATION
  Report Type: 
  Country: None (occurrence: None)
  Receive Date: 20040804
  Receipt Date: 20031119
  Transmission Date: 20050211
  Serious: No
  Sender: FDA-Public Use
  Company Number: US-BRISTOL-MYERS SQUIBB COMPANY-12439642

PATIENT
  Age: 69 Year
  Sex: Female
  Weight: 88 kg

DRUGS (6)
  1. GLUCOVANCE [Suspect]
     Indication: DIABETES MELLITUS
     Dosage: DOSAGE FORM = TABLET (2.5MG/500MG PER TABLET)
     Route: 048
     Dates: start: 20031116
  2. PREMARIN [Concomitant]
  3. INDAPAMIDE [Concomitant]
  4. POTASSIUM [Concomitant]
  5. ACCUPRIL [Concomitant]
  6. ACTIMOL [Concomitant]

REACTIONS (1)
  - DIARRHOEA [None]
